FAERS Safety Report 11051208 (Version 1)
Quarter: 2015Q2

REPORT INFORMATION
  Report Type: Spontaneous
  Country: US (occurrence: None)
  Receive Date: 20150420
  Receipt Date: 20150420
  Transmission Date: 20150821
  Serious: No
  Sender: FDA-Public Use
  Company Number: None

PATIENT

DRUGS (1)
  1. CELEXA [Suspect]
     Active Substance: CITALOPRAM HYDROBROMIDE

REACTIONS (9)
  - Flushing [None]
  - Medication error [None]
  - Wrong drug administered [None]
  - Palpitations [None]
  - Heart rate irregular [None]
  - Abdominal pain upper [None]
  - Feeling hot [None]
  - Abdominal discomfort [None]
  - Paraesthesia [None]

NARRATIVE: CASE EVENT DATE: 2015
